FAERS Safety Report 10203276 (Version 3)
Quarter: 2014Q3

REPORT INFORMATION
  Report Type: Spontaneous
  Country: IT (occurrence: IT)
  Receive Date: 20140529
  Receipt Date: 20140803
  Transmission Date: 20150326
  Serious: Yes (Life-Threatening, Hospitalization)
  Sender: FDA-Public Use
  Company Number: IT-BRISTOL-MYERS SQUIBB COMPANY-20787842

PATIENT
  Age: 86 Year
  Sex: Male

DRUGS (10)
  1. CONTRAMAL [Interacting]
     Active Substance: TRAMADOL HYDROCHLORIDE
     Indication: PAIN
     Dosage: 100 MG/ML ORAL DROPS SOLUTION
     Route: 048
     Dates: start: 20140408, end: 20140418
  2. SIMVASTATIN. [Concomitant]
     Active Substance: SIMVASTATIN
     Dosage: DOSAGE/20MG FOR 3 YEARS,
  3. LANTUS [Concomitant]
     Active Substance: INSULIN GLARGINE
     Indication: TYPE 2 DIABETES MELLITUS
     Dosage: 1DF=100 IU/ML INJECTION SOLUTION
  4. ZYLORIC [Concomitant]
     Active Substance: ALLOPURINOL
     Dosage: 300 MG TABS?1DF=1UNIT
  5. ROCALTROL [Concomitant]
     Active Substance: CALCITRIOL
     Dosage: 0.25 MG CAPS
  6. PRITOR [Concomitant]
     Active Substance: TELMISARTAN
     Dosage: 40 MG TABS FOR 2 YEARS,
  7. COUMADIN [Suspect]
     Active Substance: WARFARIN SODIUM
     Indication: ATRIAL FIBRILLATION
     Dosage: 5MG TABS?1DF=UNITS
     Route: 048
     Dates: start: 20100427, end: 20140418
  8. CORDARONE [Concomitant]
     Active Substance: AMIODARONE HYDROCHLORIDE
     Indication: CONGESTIVE CARDIOMYOPATHY
     Dosage: 200 MG TABS FOR 2 YEARS
  9. MEPRAL [Concomitant]
     Active Substance: OMEPRAZOLE SODIUM
     Dosage: 20 MG CAPS FOR 3 YEARS,
  10. LASIX [Concomitant]
     Active Substance: FUROSEMIDE
     Indication: HYPERTENSION
     Dosage: 25 MG TABS, DOSAGE/2/UNIT

REACTIONS (5)
  - Drug interaction [Recovered/Resolved]
  - Anaemia [Recovered/Resolved]
  - International normalised ratio increased [Unknown]
  - Melaena [Recovered/Resolved]
  - Hypovolaemic shock [Recovered/Resolved]

NARRATIVE: CASE EVENT DATE: 20140414
